FAERS Safety Report 8394901-X (Version None)
Quarter: 2012Q2

REPORT INFORMATION
  Report Type: 
  Country: None (occurrence: None)
  Receive Date: 20120530
  Receipt Date: 20110421
  Transmission Date: 20120825
  Serious: No
  Sender: FDA-Public Use
  Company Number: US-GLAXOSMITHKLINE-A0924602A

PATIENT
  Age: 49 Year
  Sex: Female
  Weight: 95.3 kg

DRUGS (10)
  1. AYR [Concomitant]
  2. TRACLEER [Concomitant]
     Dosage: 125MG TWICE PER DAY
  3. CELLCEPT [Concomitant]
     Dosage: 500MG TWICE PER DAY
  4. METOPROLOL TARTRATE [Concomitant]
  5. PREDNISONE TAB [Concomitant]
     Dosage: 10MG PER DAY
  6. FOLIC ACID [Concomitant]
  7. OXYGEN [Concomitant]
  8. HYDROXYCHLOROQUINE SULFATE [Concomitant]
     Dosage: 200MG TWICE PER DAY
  9. AYR [Concomitant]
  10. FLOLAN [Suspect]
     Indication: PULMONARY ARTERIAL HYPERTENSION
     Dates: start: 20011025

REACTIONS (1)
  - EPISTAXIS [None]
